FAERS Safety Report 17114288 (Version 1)
Quarter: 2019Q4

REPORT INFORMATION
  Report Type: Other
  Country: CA (occurrence: CA)
  Receive Date: 20191205
  Receipt Date: 20191205
  Transmission Date: 20200122
  Serious: Yes (Hospitalization, Other)
  Sender: FDA-Public Use
  Company Number: CA-APOTEX-2019AP025501

PATIENT
  Age: 42 Year

DRUGS (1)
  1. QUETIAPINE. [Suspect]
     Active Substance: QUETIAPINE
     Indication: PRODUCT USED FOR UNKNOWN INDICATION
     Dosage: UNK
     Route: 048

REACTIONS (9)
  - Weight increased [Unknown]
  - Loss of libido [Unknown]
  - Psychotic disorder [Unknown]
  - Suicidal ideation [Unknown]
  - Delusional disorder, persecutory type [Unknown]
  - Autism spectrum disorder [Unknown]
  - Anxiety [Unknown]
  - Depression [Unknown]
  - Apathy [Unknown]
